FAERS Safety Report 8554835-4 (Version None)
Quarter: 2012Q3

REPORT INFORMATION
  Report Type: 
  Country: None (occurrence: None)
  Receive Date: 20120731
  Receipt Date: 20120720
  Transmission Date: 20120928
  Serious: Yes (Hospitalization)
  Sender: FDA-Public Use
  Company Number: KR-BAXTER-2012BAX010843

PATIENT
  Sex: Female
  Weight: 44 kg

DRUGS (7)
  1. PHYSIONEAL 2.5% [Suspect]
     Route: 033
     Dates: start: 20110809, end: 20120705
  2. PHYSIONEAL 2.5% [Suspect]
     Route: 033
     Dates: start: 20120706, end: 20120708
  3. EXTRANEAL [Suspect]
     Route: 033
     Dates: start: 20110809
  4. EXTRANEAL [Suspect]
  5. PHYSIONEAL 4.25% [Suspect]
     Route: 033
     Dates: start: 20120706, end: 20120708
  6. PHYSIONEAL 2.5% [Suspect]
     Route: 033
     Dates: start: 20120709
  7. PHYSIONEAL 4.25% [Suspect]

REACTIONS (2)
  - HYPONATRAEMIA [None]
  - OEDEMA PERIPHERAL [None]
